FAERS Safety Report 7555761-X (Version None)
Quarter: 2011Q2

REPORT INFORMATION
  Report Type: 
  Country: None (occurrence: None)
  Receive Date: 20110618
  Receipt Date: 20110518
  Transmission Date: 20111010
  Serious: Yes (Other)
  Sender: FDA-Public Use
  Company Number: US-BAYER-2011-043986

PATIENT
  Sex: Female
  Weight: 51 kg

DRUGS (2)
  1. ACETAMINOPHEN [Concomitant]
  2. ALEVE (CAPLET) [Suspect]
     Dosage: 1 DF, ONCE
     Route: 048

REACTIONS (1)
  - HAEMATOCHEZIA [None]
